FAERS Safety Report 17382493 (Version 1)
Quarter: 2020Q1

REPORT INFORMATION
  Report Type: Spontaneous
  Country: US (occurrence: US)
  Receive Date: 20200206
  Receipt Date: 20200206
  Transmission Date: 20200409
  Serious: Yes (Other)
  Sender: FDA-Public Use
  Company Number: US-ABBVIE-19K-163-2955242-00

PATIENT
  Age: 86 Year
  Sex: Female

DRUGS (1)
  1. HUMIRA [Suspect]
     Active Substance: ADALIMUMAB
     Indication: COLITIS ULCERATIVE
     Route: 058
     Dates: start: 2017

REACTIONS (9)
  - Injection site pain [Unknown]
  - Device issue [Unknown]
  - Incorrect dose administered [Unknown]
  - Gastric operation [Unknown]
  - Injection site haemorrhage [Unknown]
  - Injection site bruising [Unknown]
  - Weight decreased [Unknown]
  - Weight gain poor [Unknown]
  - Injection site erythema [Unknown]

NARRATIVE: CASE EVENT DATE: 20191007
